FAERS Safety Report 9578997 (Version 2)
Quarter: 2013Q4

REPORT INFORMATION
  Report Type: Spontaneous
  Country: US (occurrence: US)
  Receive Date: 20131001
  Receipt Date: 20131001
  Transmission Date: 20140711
  Serious: Yes (Other)
  Sender: FDA-Public Use
  Company Number: US-AMGEN-USASP2013013482

PATIENT
  Age: 39 Year
  Sex: Male
  Weight: 75.5 kg

DRUGS (2)
  1. EPOGEN [Suspect]
     Indication: RENAL FAILURE CHRONIC
     Dosage: 5000 UNK, 2XMONTHS
     Route: 058
     Dates: start: 20121016
  2. EPOGEN [Suspect]

REACTIONS (1)
  - Drug ineffective [Unknown]
